FAERS Safety Report 5470865-3 (Version None)
Quarter: 2007Q3

REPORT INFORMATION
  Report Type: 
  Country: None (occurrence: None)
  Receive Date: 20070925
  Receipt Date: 20070910
  Transmission Date: 20080115
  Serious: Yes (Hospitalization, Other)
  Sender: FDA-Public Use
  Company Number: 6037854

PATIENT
  Age: 55 Year
  Sex: Male

DRUGS (4)
  1. FLUCONAZOLE [Suspect]
     Indication: NON-HODGKIN'S LYMPHOMA
     Dates: start: 19990101
  2. ACYCLOVIR [Suspect]
     Indication: DRUG USE FOR UNKNOWN INDICATION
  3. SULFAMETHOXAZOLE AND TRIMETHOPRIM [Suspect]
     Indication: DRUG USE FOR UNKNOWN INDICATION
  4. ALLOPURINOL [Suspect]
     Indication: DRUG USE FOR UNKNOWN INDICATION

REACTIONS (5)
  - ACINETOBACTER INFECTION [None]
  - BLOOD CULTURE POSITIVE [None]
  - CULTURE WOUND POSITIVE [None]
  - STAPHYLOCOCCAL INFECTION [None]
  - TOXIC EPIDERMAL NECROLYSIS [None]
